FAERS Safety Report 6333106-0 (Version None)
Quarter: 2009Q3

REPORT INFORMATION
  Report Type: 
  Country: None (occurrence: None)
  Receive Date: 20090828
  Receipt Date: 20090821
  Transmission Date: 20100115
  Serious: Yes (Hospitalization)
  Sender: FDA-Public Use
  Company Number: US-AVENTIS-200917536US

PATIENT
  Sex: Female

DRUGS (3)
  1. LANTUS [Suspect]
     Route: 058
  2. APIDRA [Suspect]
     Dosage: DOSE: 60 U WITH MEALS
     Route: 058
  3. OPTICLIK (INSULIN INJECTION PEN) [Suspect]

REACTIONS (2)
  - CARDIAC ARREST [None]
  - VISUAL IMPAIRMENT [None]
